FAERS Safety Report 7009421-4 (Version None)
Quarter: 2010Q3

REPORT INFORMATION
  Report Type: 
  Country: None (occurrence: None)
  Receive Date: 20100921
  Receipt Date: 20100908
  Transmission Date: 20110219
  Serious: Yes (Death)
  Sender: FDA-Public Use
  Company Number: DKLU1062725

PATIENT
  Age: 23 Month
  Sex: Female

DRUGS (3)
  1. COSMEGEN [Suspect]
     Indication: NEPHROBLASTOMA
     Dosage: 0.7 MG MILLIGRAM(S), EVERY OTHER WEEK, INTRAVENOUS (NOT OTHERWISE SPECIFIED)
     Dates: start: 20100416, end: 20100514
  2. COSMEGEN [Suspect]
     Indication: NEPHROBLASTOMA
     Dosage: 0.7 MG MILLIGRAM(S), EVERY OTHER WEEK, INTRAVENOUS (NOT OTHERWISE SPECIFIED)
     Dates: start: 20100416
  3. COSMEGEN [Suspect]
     Indication: NEPHROBLASTOMA
     Dosage: 0.7 MG MILLIGRAM(S), EVERY OTHER WEEK, INTRAVENOUS (NOT OTHERWISE SPECIFIED)
     Dates: start: 20100430

REACTIONS (14)
  - ASCITES [None]
  - COMA [None]
  - CONTUSION [None]
  - DISSEMINATED INTRAVASCULAR COAGULATION [None]
  - EYE SWELLING [None]
  - HAEMATEMESIS [None]
  - HEPATIC FAILURE [None]
  - HEPATOMEGALY [None]
  - HEPATOTOXICITY [None]
  - HYPERAMMONAEMIA [None]
  - NEUTROPENIA [None]
  - NO THERAPEUTIC RESPONSE [None]
  - PALLOR [None]
  - TOXIC ENCEPHALOPATHY [None]
